FAERS Safety Report 8133198-2 (Version None)
Quarter: 2012Q1

REPORT INFORMATION
  Report Type: 
  Country: None (occurrence: None)
  Receive Date: 20120213
  Receipt Date: 20120207
  Transmission Date: 20120608
  Serious: Yes (Death, Other)
  Sender: FDA-Public Use
  Company Number: PHEH2009US07474

PATIENT
  Sex: Female

DRUGS (7)
  1. HERCEPTIN [Concomitant]
  2. TAMOXIFEN CITRATE [Concomitant]
  3. CARBOPLATIN [Concomitant]
  4. NAVELBINE [Concomitant]
  5. ZOMETA [Suspect]
  6. TAXOL [Concomitant]
  7. XANAX [Concomitant]

REACTIONS (22)
  - GENERAL PHYSICAL HEALTH DETERIORATION [None]
  - HYPERTENSION [None]
  - MALNUTRITION [None]
  - ASTHMA [None]
  - PLEURAL EFFUSION [None]
  - DYSPNOEA [None]
  - LUNG INFILTRATION [None]
  - DISABILITY [None]
  - HAEMOPTYSIS [None]
  - PAIN [None]
  - NEOPLASM MALIGNANT [None]
  - METASTASES TO LUNG [None]
  - RESTRICTIVE PULMONARY DISEASE [None]
  - ANXIETY [None]
  - ANHEDONIA [None]
  - DEPRESSION [None]
  - DEATH [None]
  - OSTEONECROSIS OF JAW [None]
  - NEOPLASM PROGRESSION [None]
  - MALIGNANT PLEURAL EFFUSION [None]
  - HEPATIC LESION [None]
  - PNEUMOTHORAX [None]
